FAERS Safety Report 24977520 (Version 1)
Quarter: 2025Q1

REPORT INFORMATION
  Report Type: Spontaneous
  Country: US (occurrence: US)
  Receive Date: 20250217
  Receipt Date: 20250217
  Transmission Date: 20250408
  Serious: Yes (Death, Hospitalization)
  Sender: MYLAN
  Company Number: US-MYLANLABS-2025M1013889

PATIENT
  Age: 38 Year
  Sex: Female

DRUGS (9)
  1. FENTANYL [Suspect]
     Active Substance: FENTANYL
     Indication: Product used for unknown indication
     Route: 048
  2. FENTANYL [Suspect]
     Active Substance: FENTANYL
     Route: 065
  3. CETIRIZINE [Suspect]
     Active Substance: CETIRIZINE HYDROCHLORIDE
     Indication: Product used for unknown indication
     Route: 048
  4. GABAPENTIN ENACARBIL [Suspect]
     Active Substance: GABAPENTIN ENACARBIL
     Indication: Product used for unknown indication
     Route: 048
  5. ALPRAZOLAM [Suspect]
     Active Substance: ALPRAZOLAM
     Indication: Product used for unknown indication
     Route: 048
  6. METHAMPHETAMINE [Suspect]
     Active Substance: METHAMPHETAMINE
     Indication: Product used for unknown indication
     Route: 048
  7. CHLORPHENIRAMINE [Suspect]
     Active Substance: CHLORPHENIRAMINE
     Indication: Product used for unknown indication
     Route: 048
  8. TRAZODONE [Suspect]
     Active Substance: TRAZODONE HYDROCHLORIDE
     Indication: Product used for unknown indication
     Route: 048
  9. HYDROXYZINE [Suspect]
     Active Substance: HYDROXYZINE HYDROCHLORIDE
     Indication: Product used for unknown indication
     Route: 048

REACTIONS (1)
  - Drug abuse [Fatal]

NARRATIVE: CASE EVENT DATE: 20230101
